FAERS Safety Report 19948257 (Version 1)
Quarter: 2021Q4

REPORT INFORMATION
  Report Type: Spontaneous
  Country: JP (occurrence: JP)
  Receive Date: 20211013
  Receipt Date: 20211013
  Transmission Date: 20220303
  Serious: Yes (Other)
  Sender: FDA-Public Use
  Company Number: 2021A766080

PATIENT
  Age: 71 Year
  Sex: Female

DRUGS (1)
  1. PULMICORT RESPULES [Suspect]
     Active Substance: BUDESONIDE
     Indication: Asthma
     Dosage: FOUR TIMES A DAY
     Route: 055

REACTIONS (2)
  - Arrhythmia [Unknown]
  - Asthma [Unknown]
